FAERS Safety Report 18479215 (Version 1)
Quarter: 2020Q4

REPORT INFORMATION
  Report Type: Spontaneous
  Country: NL (occurrence: NL)
  Receive Date: 20201109
  Receipt Date: 20201109
  Transmission Date: 20210114
  Serious: Yes (Other)
  Sender: FDA-Public Use
  Company Number: NL-ACCORD-207673

PATIENT
  Sex: Female

DRUGS (7)
  1. TEMAZEPAM. [Concomitant]
     Active Substance: TEMAZEPAM
     Dosage: CAPSULE, 20 MG (MILLIGRAM)
  2. OMEPRAZOLE. [Concomitant]
     Active Substance: OMEPRAZOLE
     Dosage: 40 MG (MILLIGRAM)
  3. LEVOCETIRIZINE/LEVOCETIRIZINE DIHYDROCHLORIDE [Concomitant]
     Active Substance: LEVOCETIRIZINE DIHYDROCHLORIDE
     Dosage: 5 MG (MILLIGRAM)
  4. DOXYCYCLINE. [Concomitant]
     Active Substance: DOXYCYCLINE
     Dosage: TABLET, 100 MG (MILLIGRAM)
  5. ZOLMITRIPTAN. [Interacting]
     Active Substance: ZOLMITRIPTAN
     Indication: MIGRAINE
     Dosage: 2.5 MG?PMH2T
     Dates: start: 20201023, end: 20201023
  6. SERTRALINE [Suspect]
     Active Substance: SERTRALINE HYDROCHLORIDE
     Indication: DEPRESSION
     Dosage: 100 MG (MILLIGRAM)
  7. DESLORATADINE. [Concomitant]
     Active Substance: DESLORATADINE
     Dosage: TABLET, 5 MG (MILLIGRAM)

REACTIONS (2)
  - Drug interaction [Unknown]
  - Serotonin syndrome [Recovering/Resolving]
